FAERS Safety Report 13242429 (Version 3)
Quarter: 2017Q4

REPORT INFORMATION
  Report Type: Report from Study
  Country: BR (occurrence: BR)
  Receive Date: 20170217
  Receipt Date: 20171116
  Transmission Date: 20180320
  Serious: Yes (Other)
  Sender: FDA-Public Use
  Company Number: BR-JNJFOC-20170210240

PATIENT
  Sex: Female
  Weight: 70 kg

DRUGS (26)
  1. SIMPONI [Suspect]
     Active Substance: GOLIMUMAB
     Indication: COLITIS ULCERATIVE
     Route: 058
     Dates: start: 20160524, end: 201709
  2. PURAN [Concomitant]
     Active Substance: LEVOTHYROXINE SODIUM
     Route: 065
  3. BROMOPRIDE [Concomitant]
     Active Substance: BROMOPRIDE
     Route: 065
  4. LOSARTAN. [Concomitant]
     Active Substance: LOSARTAN
     Route: 065
  5. SIMETHICONE (DIMETHICONE) [Concomitant]
     Active Substance: DIMETHICONE
     Route: 065
  6. MICONAZOLE. [Concomitant]
     Active Substance: MICONAZOLE
     Route: 065
  7. SIMPONI [Suspect]
     Active Substance: GOLIMUMAB
     Indication: FELTY^S SYNDROME
     Route: 058
     Dates: start: 20160524, end: 201709
  8. TAMSULOSIN [Suspect]
     Active Substance: TAMSULOSIN
     Indication: BLADDER DISORDER
     Route: 065
  9. FLUOXETIN [Concomitant]
     Active Substance: FLUOXETINE HYDROCHLORIDE
     Route: 065
  10. CLONAZEPAM. [Concomitant]
     Active Substance: CLONAZEPAM
     Route: 065
  11. LASIX [Concomitant]
     Active Substance: FUROSEMIDE
     Route: 065
  12. PENTASA [Concomitant]
     Active Substance: MESALAMINE
     Route: 065
  13. BUSCOPAN [Concomitant]
     Active Substance: BUTYLSCOPOLAMINE BROMIDE
     Route: 065
  14. GLUTAMINE [Concomitant]
     Active Substance: GLUTAMINE
     Route: 065
  15. VELIJA [Concomitant]
     Active Substance: DULOXETINE HYDROCHLORIDE
     Route: 065
  16. TRIMEBUTINE MALEATE [Concomitant]
     Active Substance: TRIMEBUTINE MALEATE
     Route: 065
  17. SIMPONI [Suspect]
     Active Substance: GOLIMUMAB
     Indication: RHEUMATOID ARTHRITIS
     Route: 058
     Dates: start: 20160524, end: 201709
  18. PANTOPRAZOLE [Concomitant]
     Active Substance: PANTOPRAZOLE
     Route: 065
  19. PIROXICAM. [Concomitant]
     Active Substance: PIROXICAM
     Route: 065
  20. GLIFAGE [Concomitant]
     Active Substance: METFORMIN HYDROCHLORIDE
     Route: 065
  21. MESALAZINE [Concomitant]
     Active Substance: MESALAMINE
     Route: 065
  22. SIMVASTATIN. [Concomitant]
     Active Substance: SIMVASTATIN
     Route: 065
  23. MACRODANTIN [Concomitant]
     Active Substance: NITROFURANTOIN
     Route: 065
  24. PROMAZINE [Concomitant]
     Active Substance: PROMAZINE
     Route: 065
  25. BROMAZEPAM [Concomitant]
     Active Substance: BROMAZEPAM
     Route: 065
  26. FUROSEMIDE. [Concomitant]
     Active Substance: FUROSEMIDE
     Route: 065

REACTIONS (9)
  - Hepatic neoplasm [Unknown]
  - Drug ineffective [Unknown]
  - Joint lock [Unknown]
  - Wound infection bacterial [Recovered/Resolved]
  - Bladder disorder [Not Recovered/Not Resolved]
  - Colitis [Unknown]
  - Drug dose omission [Unknown]
  - Cardiac operation [Unknown]
  - Blood pressure fluctuation [Unknown]

NARRATIVE: CASE EVENT DATE: 2016
